FAERS Safety Report 21932464 (Version 1)
Quarter: 2023Q1

REPORT INFORMATION
  Report Type: Spontaneous
  Country: JP (occurrence: JP)
  Receive Date: 20230131
  Receipt Date: 20230131
  Transmission Date: 20230417
  Serious: Yes (Other)
  Sender: FDA-Public Use
  Company Number: JP-DSJP-DSJ-2023-103058

PATIENT
  Age: 84 Year
  Sex: Female
  Weight: 50 kg

DRUGS (40)
  1. PRASUGREL HYDROCHLORIDE [Suspect]
     Active Substance: PRASUGREL HYDROCHLORIDE
     Indication: Coronary artery disease
     Dosage: UNK
     Route: 048
  2. EPINEPHRINE [Suspect]
     Active Substance: EPINEPHRINE
     Indication: Blood pressure decreased
     Dosage: 0.03UG/KG/MIN
     Route: 065
  3. EPINEPHRINE [Suspect]
     Active Substance: EPINEPHRINE
     Dosage: 0.06UG/KG/MIN
     Route: 065
  4. EPINEPHRINE [Suspect]
     Active Substance: EPINEPHRINE
     Dosage: 0.1UG/KG/MIN
     Route: 065
  5. AMLODIPINE BESYLATE [Concomitant]
     Active Substance: AMLODIPINE BESYLATE
     Indication: Hypertension
     Dosage: UNK
     Route: 048
  6. ASPIRIN [Concomitant]
     Active Substance: ASPIRIN
     Indication: Coronary artery disease
     Dosage: UNK
     Route: 048
  7. NICORANDIL [Concomitant]
     Active Substance: NICORANDIL
     Indication: Coronary artery disease
     Dosage: UNK
     Route: 048
  8. FENTANYL CITRATE [Concomitant]
     Active Substance: FENTANYL CITRATE
     Indication: Anaesthesia procedure
     Dosage: 0.4MG/DAY
     Route: 065
  9. MIDAZOLAM [Concomitant]
     Active Substance: MIDAZOLAM
     Indication: Anaesthesia procedure
     Dosage: 3MG/DAY
     Route: 065
  10. ROCURONIUM BROMIDE [Concomitant]
     Active Substance: ROCURONIUM BROMIDE
     Indication: Anaesthesia procedure
     Dosage: 50MG/DAY
     Route: 065
  11. SEVOFLURANE [Concomitant]
     Active Substance: SEVOFLURANE
     Dosage: 3%/DAY
     Route: 065
  12. SEVOFLURANE [Concomitant]
     Active Substance: SEVOFLURANE
     Dosage: 1%/?
     Route: 065
  13. SEVOFLURANE [Concomitant]
     Active Substance: SEVOFLURANE
     Dosage: 3%/DAY
     Route: 065
  14. SEVOFLURANE [Concomitant]
     Active Substance: SEVOFLURANE
     Dosage: 3%/DAY
     Route: 065
  15. SEVOFLURANE [Concomitant]
     Active Substance: SEVOFLURANE
     Dosage: 1%/?
     Route: 065
  16. PROPOFOL [Concomitant]
     Active Substance: PROPOFOL
     Dosage: 10ML/H
     Route: 065
  17. PROPOFOL [Concomitant]
     Active Substance: PROPOFOL
     Dosage: 25ML/H
     Route: 065
  18. PROPOFOL [Concomitant]
     Active Substance: PROPOFOL
     Dosage: 20ML/H
     Route: 065
  19. DOBUTAMINE HYDROCHLORIDE [Concomitant]
     Active Substance: DOBUTAMINE HYDROCHLORIDE
     Dosage: 3UG/KG/MIN
     Route: 065
  20. DOBUTAMINE HYDROCHLORIDE [Concomitant]
     Active Substance: DOBUTAMINE HYDROCHLORIDE
     Dosage: 5UG/KG/MIN
     Route: 065
  21. DOBUTAMINE HYDROCHLORIDE [Concomitant]
     Active Substance: DOBUTAMINE HYDROCHLORIDE
     Dosage: 10UG/KG/MIN
     Route: 065
  22. NOREPINEPHRINE [Concomitant]
     Active Substance: NOREPINEPHRINE
     Dosage: 0.02UG/KG/MIN
     Route: 065
  23. NOREPINEPHRINE [Concomitant]
     Active Substance: NOREPINEPHRINE
     Dosage: 0.04UG/KG/MIN
     Route: 065
  24. NOREPINEPHRINE [Concomitant]
     Active Substance: NOREPINEPHRINE
     Dosage: 0.02UG/KG/MIN
     Route: 065
  25. NOREPINEPHRINE [Concomitant]
     Active Substance: NOREPINEPHRINE
     Dosage: 0.04UG/KG/MIN
     Route: 065
  26. NOREPINEPHRINE [Concomitant]
     Active Substance: NOREPINEPHRINE
     Dosage: 0.06UG/KG/MIN
     Route: 065
  27. NOREPINEPHRINE [Concomitant]
     Active Substance: NOREPINEPHRINE
     Dosage: 0.1UG/KG/MIN
     Route: 065
  28. NOREPINEPHRINE [Concomitant]
     Active Substance: NOREPINEPHRINE
     Dosage: 0.2UG/KG/MIN
     Route: 065
  29. NOREPINEPHRINE [Concomitant]
     Active Substance: NOREPINEPHRINE
     Dosage: 0.3UG/KG/MIN
     Route: 065
  30. VASOPRESSIN [Concomitant]
     Active Substance: VASOPRESSIN
     Dosage: 0.6U/H
     Route: 065
  31. VASOPRESSIN [Concomitant]
     Active Substance: VASOPRESSIN
     Dosage: 1.2U/H
     Route: 065
  32. VASOPRESSIN [Concomitant]
     Active Substance: VASOPRESSIN
     Dosage: 1.8U/H
     Route: 065
  33. VASOPRESSIN [Concomitant]
     Active Substance: VASOPRESSIN
     Dosage: 2.4U/H
     Route: 065
  34. VASOPRESSIN [Concomitant]
     Active Substance: VASOPRESSIN
     Dosage: 1U/DAY, 3 TIMES
     Route: 065
  35. ISOSORBIDE DINITRATE [Concomitant]
     Active Substance: ISOSORBIDE DINITRATE
     Dosage: 0.48UG/KG/MIN
     Route: 065
  36. MILRINONE [Concomitant]
     Active Substance: MILRINONE
     Dosage: 0.16UG/KG/MIN
     Route: 065
  37. MILRINONE [Concomitant]
     Active Substance: MILRINONE
     Dosage: 0.32UG/KG/MIN
     Route: 065
  38. MILRINONE [Concomitant]
     Active Substance: MILRINONE
     Dosage: 0.48UG/KG/MIN
     Route: 065
  39. MILRINONE [Concomitant]
     Active Substance: MILRINONE
     Dosage: 0.64UG/KG/MIN
     Route: 065
  40. MILRINONE [Concomitant]
     Active Substance: MILRINONE
     Dosage: 50 UG/KG, SINGLE
     Route: 065

REACTIONS (5)
  - Vascular anastomotic haemorrhage [Recovering/Resolving]
  - Vessel puncture site haemorrhage [Recovering/Resolving]
  - Arterial injury [Recovering/Resolving]
  - Liver disorder [Unknown]
  - Platelet count decreased [Unknown]
